FAERS Safety Report 17336463 (Version 1)
Quarter: 2020Q1

REPORT INFORMATION
  Report Type: Report from Study
  Country: IT (occurrence: IT)
  Receive Date: 20200128
  Receipt Date: 20200128
  Transmission Date: 20200409
  Serious: Yes (Death, Life-Threatening)
  Sender: FDA-Public Use
  Company Number: IT-AMGEN-ITACT2020013664

PATIENT
  Age: 20 Year
  Sex: Female

DRUGS (16)
  1. PEG/L-ASPARAGINASE [Suspect]
     Active Substance: PEGASPARGASE
     Indication: ACUTE LYMPHOCYTIC LEUKAEMIA
     Dosage: 1965 U
     Route: 042
     Dates: start: 20200105
  2. IDARUBICINA [IDARUBICIN] [Suspect]
     Active Substance: IDARUBICIN
     Indication: ACUTE LYMPHOCYTIC LEUKAEMIA
     Dosage: 15.72 MILLIGRAM
     Route: 042
     Dates: start: 20191227, end: 20191228
  3. MEROPENEM. [Concomitant]
     Active Substance: MEROPENEM
     Dosage: 1 GRAM, TID
     Dates: start: 20200109
  4. DESAMETASONE [Suspect]
     Active Substance: DEXAMETHASONE
     Indication: ACUTE LYMPHOCYTIC LEUKAEMIA
     Dosage: 18 MILLIGRAM
     Route: 042
     Dates: start: 20191227, end: 20191231
  5. MICAFUNGINA [Concomitant]
     Active Substance: MICAFUNGIN
     Dosage: 50 MILLIGRAM, QD
     Dates: start: 20200107
  6. CICLOFOSFAMIDA [Suspect]
     Active Substance: CYCLOPHOSPHAMIDE
     Indication: ACUTE LYMPHOCYTIC LEUKAEMIA
     Dosage: 393 MILLIGRAM
     Route: 042
     Dates: start: 20191224, end: 20191226
  7. DESAMETASONE [Suspect]
     Active Substance: DEXAMETHASONE
     Dosage: 18 MILLIGRAM
     Route: 042
     Dates: start: 20200110, end: 20200114
  8. MEROPENEM. [Concomitant]
     Active Substance: MEROPENEM
     Dosage: UNK
     Dates: start: 20200113
  9. BLINATUMOMAB [Suspect]
     Active Substance: BLINATUMOMAB
     Indication: ACUTE LYMPHOCYTIC LEUKAEMIA
     Route: 065
  10. VINCRISTINE [Suspect]
     Active Substance: VINCRISTINE
     Dosage: 1.83 MILLIGRAM
     Route: 042
     Dates: start: 20200110
  11. GENTAMICINA [GENTAMICIN] [Concomitant]
     Dosage: 40 MILLIGRAM, TID
     Dates: start: 20200104, end: 20200108
  12. VANCOCINA [Concomitant]
     Dosage: 750 MILLIGRAM, BID
     Dates: start: 20200110, end: 20200112
  13. VINCRISTINE [Suspect]
     Active Substance: VINCRISTINE
     Dosage: 1.83 MILLIGRAM
     Route: 042
     Dates: start: 20200103
  14. METHYLPREDNISOLONE. [Suspect]
     Active Substance: METHYLPREDNISOLONE
     Indication: ACUTE LYMPHOCYTIC LEUKAEMIA
     Dosage: 80 MILLIGRAM
     Route: 042
     Dates: start: 20191222, end: 20191226
  15. VINCRISTINE [Suspect]
     Active Substance: VINCRISTINE
     Indication: ACUTE LYMPHOCYTIC LEUKAEMIA
     Dosage: 1.83 MILLIGRAM
     Route: 042
     Dates: start: 20191227
  16. PIPERACILLIN/TAZOBACTAM [Concomitant]
     Active Substance: PIPERACILLIN SODIUM\TAZOBACTAM SODIUM
     Dosage: 4.5 GRAM, TID
     Dates: start: 20200104, end: 20200109

REACTIONS (1)
  - Myocarditis [Fatal]

NARRATIVE: CASE EVENT DATE: 20200115
